FAERS Safety Report 7378936-1 (Version None)
Quarter: 2011Q1

REPORT INFORMATION
  Report Type: 
  Country: None (occurrence: None)
  Receive Date: 20110328
  Receipt Date: 20110325
  Transmission Date: 20110831
  Serious: Yes (Life-Threatening, Hospitalization)
  Sender: FDA-Public Use
  Company Number: PHHY2011GB14544

PATIENT
  Age: 76 Year
  Sex: Male

DRUGS (12)
  1. AMLODIPINE [Concomitant]
  2. ASPIRIN [Concomitant]
  3. IRBESARTAN [Concomitant]
  4. ISOSORBIDE MONONITRATE [Concomitant]
  5. ONDANSETRON HYDROCHLORIDE [Suspect]
     Indication: PROPHYLAXIS OF NAUSEA AND VOMITING
     Dosage: 8 MG, UNK
     Route: 042
     Dates: start: 20110111, end: 20110111
  6. BISOPROLOL FUMARATE [Concomitant]
  7. FERROUS SULFATE TAB [Concomitant]
  8. IRINOTECAN HYDROCHLORIDE [Suspect]
     Indication: COLON CANCER STAGE IV
     Dosage: 620 MG, UNK
     Route: 042
     Dates: start: 20110111, end: 20110111
  9. METFORMIN [Concomitant]
  10. DEXAMETHASONE [Suspect]
     Dosage: 8 MG, UNK
     Dates: start: 20110111, end: 20110113
  11. GLICLAZIDE [Concomitant]
  12. PRAVASTATIN SODIUM [Concomitant]

REACTIONS (5)
  - CHEST DISCOMFORT [None]
  - TROPONIN T INCREASED [None]
  - ACUTE MYOCARDIAL INFARCTION [None]
  - VOMITING [None]
  - DIARRHOEA [None]
